FAERS Safety Report 15346894 (Version 1)
Quarter: 2018Q3

REPORT INFORMATION
  Report Type: Spontaneous
  Country: US (occurrence: US)
  Receive Date: 20180828
  Receipt Date: 20180828
  Transmission Date: 20181010
  Serious: Yes (Life-Threatening, Hospitalization, Other)
  Sender: FDA-Public Use
  Company Number: None

PATIENT
  Age: 30 Year
  Sex: Male
  Weight: 70 kg

DRUGS (1)
  1. DICLAZEPAM [Suspect]
     Active Substance: 2-CHLORODIAZEPAM

REACTIONS (2)
  - Coma [None]
  - Substance use [None]

NARRATIVE: CASE EVENT DATE: 20180818
